FAERS Safety Report 8769279 (Version 3)
Quarter: 2012Q4

REPORT INFORMATION
  Report Type: 
  Country: JP (occurrence: JP)
  Receive Date: 20120905
  Receipt Date: 20120917
  Transmission Date: 20130627
  Serious: Yes (Other)
  Sender: FDA-Public Use
  Company Number: JP-PFIZER INC-2012188362

PATIENT
  Age: 64 Year
  Sex: Male
  Weight: 55.7 kg

DRUGS (5)
  1. LYRICA [Suspect]
     Indication: HYPOAESTHESIA
     Dosage: 75 mg, 1x/day, after dinner
     Route: 048
     Dates: start: 20120731, end: 20120802
  2. LYRICA [Suspect]
     Indication: PAIN IN EXTREMITY
  3. ETODOLAC [Suspect]
     Indication: ANALGESIC THERAPY
     Dosage: 200 mg, 2x/day
     Route: 048
     Dates: start: 20120731, end: 20120802
  4. SELBEX [Suspect]
     Dosage: 50 mg, 2x/day
     Route: 048
     Dates: start: 20111214, end: 20120802
  5. AMOBAN [Suspect]
     Indication: INSOMNIA
     Dosage: 7.5 mg, 1x/day
     Route: 048
     Dates: start: 20120710

REACTIONS (5)
  - Face oedema [Recovered/Resolved]
  - Rash generalised [Recovering/Resolving]
  - Erythema [Recovered/Resolved]
  - Feeling abnormal [Unknown]
  - Eosinophil percentage increased [None]
